FAERS Safety Report 4718177-7 (Version None)
Quarter: 2005Q3

REPORT INFORMATION
  Report Type: 
  Country: None (occurrence: None)
  Receive Date: 20050720
  Receipt Date: 20050711
  Transmission Date: 20060218
  Serious: Yes (Hospitalization)
  Sender: FDA-Public Use
  Company Number: GB-ROCHE-410421

PATIENT
  Age: 35 Year
  Sex: Female
  Weight: 125.8 kg

DRUGS (1)
  1. XENICAL [Suspect]
     Indication: OBESITY
     Route: 048
     Dates: start: 20050607, end: 20050709

REACTIONS (2)
  - DIZZINESS [None]
  - EPILEPSY [None]
